FAERS Safety Report 10064309 (Version 1)
Quarter: 2014Q2

REPORT INFORMATION
  Report Type: Spontaneous
  Country: IR (occurrence: None)
  Receive Date: 20140404
  Receipt Date: 20140404
  Transmission Date: 20141212
  Serious: Yes (Other)
  Sender: FDA-Public Use
  Company Number: 2014P1002696

PATIENT
  Age: 41 Year
  Sex: Male

DRUGS (4)
  1. NALTREXONE [Suspect]
     Indication: TOXICITY TO VARIOUS AGENTS
  2. BENZODIAZEPINE [Suspect]
  3. TRAMADOL [Suspect]
     Dates: start: 2004
  4. OPIUM [Suspect]

REACTIONS (7)
  - Sinus tachycardia [None]
  - Convulsion [None]
  - Toxicity to various agents [None]
  - Agitation [None]
  - Serotonin syndrome [None]
  - Rhabdomyolysis [None]
  - Loss of consciousness [None]
